FAERS Safety Report 12728448 (Version 1)
Quarter: 2016Q3

REPORT INFORMATION
  Report Type: Not Available
  Country: SK (occurrence: SK)
  Receive Date: 20160909
  Receipt Date: 20160909
  Transmission Date: 20161109
  Serious: Yes (Life-Threatening, Hospitalization)
  Sender: FDA-Public Use
  Company Number: SK-AKORN-38705

PATIENT
  Age: 85 Year
  Sex: Female

DRUGS (1)
  1. COSOPT [Suspect]
     Active Substance: DORZOLAMIDE HYDROCHLORIDE\TIMOLOL MALEATE

REACTIONS (2)
  - Nodal arrhythmia [Recovered/Resolved]
  - Sinus node dysfunction [Unknown]

NARRATIVE: CASE EVENT DATE: 20160817
